FAERS Safety Report 10501142 (Version 1)
Quarter: 2014Q4

REPORT INFORMATION
  Report Type: Spontaneous
  Country: US (occurrence: None)
  Receive Date: 20141006
  Receipt Date: 20141006
  Transmission Date: 20150528
  Serious: Yes (Life-Threatening, Other)
  Sender: FDA-Public Use
  Company Number: None

PATIENT
  Age: 89 Year
  Sex: Female
  Weight: 52.16 kg

DRUGS (4)
  1. BLOOD PRESSURE MEDICATION [Concomitant]
     Active Substance: UNSPECIFIED INGREDIENT
  2. CALCIUM [Concomitant]
     Active Substance: CALCIUM
  3. PROLIA [Suspect]
     Active Substance: DENOSUMAB
     Indication: OSTEOPOROSIS
     Dosage: INJECTION/ABDOMEN.
     Dates: start: 20140404, end: 20140404
  4. VITAMIN D [Concomitant]
     Active Substance: CHOLECALCIFEROL

REACTIONS (7)
  - Hiatus hernia [None]
  - Compression fracture [None]
  - Chronic obstructive pulmonary disease [None]
  - Aortic calcification [None]
  - Lymphadenitis [None]
  - Pain [None]
  - Intervertebral disc degeneration [None]

NARRATIVE: CASE EVENT DATE: 20140425
